FAERS Safety Report 21970544 (Version 1)
Quarter: 2023Q1

REPORT INFORMATION
  Report Type: Spontaneous
  Country: FR (occurrence: FR)
  Receive Date: 20230209
  Receipt Date: 20230209
  Transmission Date: 20230418
  Serious: Yes (Hospitalization)
  Sender: FDA-Public Use
  Company Number: FR-AFSSAPS-NY2023000102

PATIENT
  Age: 3 Year
  Sex: Female

DRUGS (1)
  1. RISPERIDONE [Suspect]
     Active Substance: RISPERIDONE
     Indication: Autism spectrum disorder
     Dosage: 5 MILLIGRAM, IN TOTAL, RECEIVED 2 TIMES 2.5 MG
     Route: 048
     Dates: start: 20220914, end: 20220914

REACTIONS (2)
  - Asthenia [Recovered/Resolved]
  - Incorrect dose administered [Recovered/Resolved]

NARRATIVE: CASE EVENT DATE: 20220915
